FAERS Safety Report 8592894-3 (Version None)
Quarter: 2012Q3

REPORT INFORMATION
  Report Type: 
  Country: None (occurrence: None)
  Receive Date: 20120814
  Receipt Date: 20120731
  Transmission Date: 20120928
  Serious: Yes (Hospitalization)
  Sender: FDA-Public Use
  Company Number: DE-UCBSA-040643

PATIENT
  Age: 74 Year
  Sex: Male
  Weight: 91 kg

DRUGS (12)
  1. FOLSAN [Concomitant]
     Dosage: 5 MG
     Dates: start: 20110907
  2. HYDROXYCHLOROQUINE SULFATE [Concomitant]
     Indication: RHEUMATOID ARTHRITIS
     Dosage: 1-0-1
     Dates: start: 20110512
  3. PREDNISONE TAB [Concomitant]
     Dosage: 5 MG QD, PATIENT SOMETIMES TOOK 10 MG
     Dates: start: 20100518
  4. ERGOCALCIFEROL [Concomitant]
     Dosage: 1-0-0
  5. FOLSAN [Concomitant]
     Indication: RHEUMATOID ARTHRITIS
     Dosage: 5 MG
     Dates: start: 19970101, end: 20110621
  6. PREDNISONE TAB [Concomitant]
     Dates: start: 20110715, end: 20110907
  7. METHOTREXATE [Concomitant]
     Indication: RHEUMATOID ARTHRITIS
     Dosage: DOSE PER INTAKE: 10  MG, QS
     Dates: start: 19970101, end: 20110621
  8. METHOTREXATE [Concomitant]
     Dosage: QS
     Dates: start: 20110907
  9. CIMZIA [Suspect]
     Indication: RHEUMATOID ARTHRITIS
     Dosage: 400 MG(NO. OF DOSES 3). NO. OF DOSES:30
     Route: 058
     Dates: start: 20100330, end: 20110620
  10. BIOFENAC [Concomitant]
     Indication: RHEUMATOID ARTHRITIS
     Dosage: PRN
  11. PREDNISONE TAB [Concomitant]
     Indication: RHEUMATOID ARTHRITIS
     Dosage: 5 MG QD, PATIENT SOMETIMES TOOK 10 MG
     Dates: start: 20100518
  12. PREDNISONE TAB [Concomitant]
     Dates: start: 20110715, end: 20110907

REACTIONS (1)
  - LUNG DISORDER [None]
